FAERS Safety Report 18231579 (Version 2)
Quarter: 2020Q4

REPORT INFORMATION
  Report Type: Report from Study
  Country: KR (occurrence: KR)
  Receive Date: 20200904
  Receipt Date: 20201019
  Transmission Date: 20210113
  Serious: Yes (Hospitalization)
  Sender: FDA-Public Use
  Company Number: KR-ROCHE-2670542

PATIENT
  Age: 71 Year
  Sex: Female
  Weight: 47.9 kg

DRUGS (21)
  1. GASTIN [Concomitant]
     Route: 048
     Dates: start: 20181203
  2. PACLITAXEL. [Suspect]
     Active Substance: PACLITAXEL
     Indication: NON-SMALL CELL LUNG CANCER
     Dosage: DATE OF LAST DOSE ADMINISTERED PRIOR TO SAE ONSET: 26/AUG/2020
     Route: 042
     Dates: start: 20200716
  3. NUCYNTA ER [Concomitant]
     Active Substance: TAPENTADOL HYDROCHLORIDE
     Route: 048
     Dates: start: 20200521
  4. PANCRON (SOUTH KOREA) [Concomitant]
     Route: 048
     Dates: start: 20200615
  5. LYRICA [Concomitant]
     Active Substance: PREGABALIN
     Route: 048
     Dates: start: 20200715
  6. BRUFEN [Concomitant]
     Active Substance: IBUPROFEN
     Dates: start: 20200904, end: 20200904
  7. CODONOPSIS SPP. [Concomitant]
     Dates: start: 20200715
  8. CHLORPHENAMINE MALEATE [Concomitant]
     Active Substance: CHLORPHENIRAMINE MALEATE
     Dosage: 1 AMP
     Dates: start: 20200904, end: 20200904
  9. PANCRON [PANCREATIN] [Concomitant]
     Dates: start: 20200615
  10. XARELTO [Concomitant]
     Active Substance: RIVAROXABAN
     Route: 048
     Dates: start: 20200826
  11. NUCYNTA [Concomitant]
     Active Substance: TAPENTADOL HYDROCHLORIDE
     Dates: start: 20200521
  12. APETROL [MEGESTROL ACETATE] [Concomitant]
     Dates: start: 20200521
  13. SANCUSO [Concomitant]
     Active Substance: GRANISETRON
     Dates: start: 20200715
  14. BEVACIZUMAB. [Suspect]
     Active Substance: BEVACIZUMAB
     Indication: NON-SMALL CELL LUNG CANCER
     Dosage: DATE OF LAST DOSE ADMINISTERED PRIOR TO SAE ONSET: 26/AUG/2020
     Route: 042
     Dates: start: 20200716
  15. APETROL ES [Concomitant]
     Dosage: 1 PK
     Route: 048
     Dates: start: 20200521
  16. DUROGESIC D TRANS [Concomitant]
     Active Substance: FENTANYL
     Dates: start: 20200715
  17. GASTIIN CR [Concomitant]
     Dates: start: 20181203
  18. LYRICA [Concomitant]
     Active Substance: PREGABALIN
     Dates: start: 20200615
  19. CARBOPLATIN. [Suspect]
     Active Substance: CARBOPLATIN
     Indication: NON-SMALL CELL LUNG CANCER
     Dosage: DATE OF LAST DOSE ADMINISTERED PRIOR TO SAE ONSET: 26/AUG/2020
     Route: 042
     Dates: start: 20200716
  20. PLOKON [Concomitant]
     Dosage: 1 TAB
     Dates: start: 20200904, end: 20200904
  21. ATEZOLIZUMAB. [Suspect]
     Active Substance: ATEZOLIZUMAB
     Indication: NON-SMALL CELL LUNG CANCER
     Dosage: DATE OF LAST DOSE ADMINISTERED PRIOR TO SAE ONSET: 26/AUG/2020
     Route: 041
     Dates: start: 20200716

REACTIONS (2)
  - Proteinuria [Recovered/Resolved]
  - Febrile neutropenia [Recovered/Resolved]

NARRATIVE: CASE EVENT DATE: 20200826
